FAERS Safety Report 24941233 (Version 1)
Quarter: 2025Q1

REPORT INFORMATION
  Report Type: Spontaneous
  Country: US (occurrence: US)
  Receive Date: 20250207
  Receipt Date: 20250207
  Transmission Date: 20250409
  Serious: Yes (Other)
  Sender: ROCHE
  Company Number: US-ROCHE-10000197473

PATIENT
  Age: 42 Year
  Sex: Male

DRUGS (6)
  1. RITUXIMAB [Suspect]
     Active Substance: RITUXIMAB
     Indication: Product used for unknown indication
     Route: 065
  2. LUPKYNIS [Suspect]
     Active Substance: VOCLOSPORIN
     Indication: Lupus nephritis
     Dosage: BID, UNKNOWN
     Route: 050
     Dates: start: 20230915
  3. LUPKYNIS [Suspect]
     Active Substance: VOCLOSPORIN
     Route: 050
  4. JARDIANCE [Concomitant]
     Active Substance: EMPAGLIFLOZIN
  5. VALSARTAN [Concomitant]
     Active Substance: VALSARTAN
  6. LOKELMA [Concomitant]
     Active Substance: SODIUM ZIRCONIUM CYCLOSILICATE

REACTIONS (7)
  - Systemic lupus erythematosus [Unknown]
  - Proteinuria [Not Recovered/Not Resolved]
  - Urticaria [Unknown]
  - Rash [Unknown]
  - Macule [Unknown]
  - Pain [Unknown]
  - Drug ineffective [Unknown]
